FAERS Safety Report 10066419 (Version 1)
Quarter: 2014Q2

REPORT INFORMATION
  Report Type: Spontaneous
  Country: IT (occurrence: IT)
  Receive Date: 20140408
  Receipt Date: 20140408
  Transmission Date: 20141212
  Serious: Yes (Hospitalization)
  Sender: FDA-Public Use
  Company Number: IT-WATSON-2013-25356

PATIENT
  Age: 60 Year
  Sex: Female

DRUGS (9)
  1. TALOFEN [Suspect]
     Indication: INTENTIONAL SELF-INJURY
     Route: 048
     Dates: start: 20130626, end: 20130626
  2. DELORAZEPAM [Suspect]
     Indication: INTENTIONAL SELF-INJURY
     Route: 048
     Dates: start: 20130626, end: 20130626
  3. LORAZEPAM (UNKNOWN) [Suspect]
     Indication: INTENTIONAL SELF-INJURY
     Route: 048
     Dates: start: 20130626, end: 20130626
  4. INSULINE GLARGINE [Concomitant]
     Indication: INTENTIONAL SELF-INJURY
     Route: 065
     Dates: start: 20130626, end: 20130626
  5. CYCLOBENZAPRINE HYDROCHLORIDE [Concomitant]
     Indication: INTENTIONAL SELF-INJURY
     Route: 065
     Dates: start: 20130626, end: 20130626
  6. GLUCOPHAGE [Concomitant]
     Indication: INTENTIONAL SELF-INJURY
     Route: 065
     Dates: start: 20130626, end: 20130626
  7. ESIDREX [Concomitant]
     Indication: INTENTIONAL SELF-INJURY
     Route: 065
     Dates: start: 20130626, end: 20130626
  8. ATENOLOL [Concomitant]
     Indication: INTENTIONAL SELF-INJURY
     Route: 065
     Dates: start: 20130626, end: 20130626
  9. INSULIN ASPART [Concomitant]
     Indication: INTENTIONAL SELF-INJURY
     Route: 065
     Dates: start: 20130626, end: 20130626

REACTIONS (2)
  - Drug abuse [Recovering/Resolving]
  - Somnolence [Recovering/Resolving]
